APPROVED DRUG PRODUCT: CEPHALEXIN
Active Ingredient: CEPHALEXIN
Strength: EQ 500MG BASE
Dosage Form/Route: CAPSULE;ORAL
Application: A063063 | Product #002
Applicant: APOTHECON INC DIV BRISTOL MYERS SQUIBB
Approved: Sep 29, 1989 | RLD: No | RS: No | Type: DISCN